FAERS Safety Report 8535770-4 (Version None)
Quarter: 2012Q3

REPORT INFORMATION
  Report Type: 
  Country: None (occurrence: None)
  Receive Date: 20120725
  Receipt Date: 20120716
  Transmission Date: 20120928
  Serious: Yes (Hospitalization, Other)
  Sender: FDA-Public Use
  Company Number: US-BAYER-2012-023883

PATIENT
  Age: 33 Year
  Sex: Female

DRUGS (12)
  1. CYCLOBENAZPRINE [Concomitant]
     Dosage: 5 MG, UNK
  2. LEVAQUIN [Concomitant]
     Dosage: 750 MG, UNK
  3. YAZ [Suspect]
     Indication: MENSTRUATION IRREGULAR
     Dosage: UNK
     Dates: start: 20080601, end: 20081001
  4. FLUCONAZOLE [Concomitant]
     Dosage: 150 MG, UNK
  5. METRONIDAZOLE [Concomitant]
     Dosage: 0.75 %, UNK
     Route: 067
  6. GLUCOCORTICOIDS [Concomitant]
     Indication: UPPER RESPIRATORY TRACT INFECTION
     Dosage: 40 MG, UNK
     Route: 030
     Dates: start: 20090216
  7. NASAL PREPARATIONS [Concomitant]
  8. FROVA [Concomitant]
     Dosage: 2.5 MG, UNK
  9. CYCLOBENAZPRINE [Concomitant]
     Dosage: 10 MG, UNK
  10. TEMAZEPAM [Concomitant]
     Dosage: 30 MG, UNK
  11. M.V.I. [Concomitant]
  12. HYDROCODONE BITARTRATE AND ACETAMINOPHEN [Concomitant]
     Dosage: 7.5-500

REACTIONS (6)
  - INJURY [None]
  - BILE DUCT STONE [None]
  - GALLBLADDER NON-FUNCTIONING [None]
  - CHOLELITHIASIS [None]
  - PAIN [None]
  - CHOLECYSTITIS ACUTE [None]
